FAERS Safety Report 4444569-X (Version None)
Quarter: 2004Q3

REPORT INFORMATION
  Report Type: 
  Country: None (occurrence: None)
  Receive Date: 20040909
  Receipt Date: 20040826
  Transmission Date: 20050211
  Serious: Yes (Hospitalization)
  Sender: FDA-Public Use
  Company Number: ES-BRISTOL-MYERS SQUIBB COMPANY-12683488

PATIENT
  Age: 31 Year
  Sex: Male
  Weight: 65 kg

DRUGS (5)
  1. VIDEX [Suspect]
     Indication: HIV INFECTION
     Route: 048
     Dates: start: 20020601, end: 20040519
  2. ZERIT [Suspect]
     Indication: HIV INFECTION
     Route: 048
     Dates: start: 20030310
  3. SUSTIVA [Suspect]
     Indication: HIV INFECTION
     Route: 048
     Dates: start: 20030310
  4. INTERFERON [Concomitant]
     Dates: start: 20040212, end: 20040519
  5. RIBAVIRIN [Concomitant]
     Dates: start: 20040212, end: 20040519

REACTIONS (1)
  - PANCREATITIS [None]
